FAERS Safety Report 9056649 (Version 1)
Quarter: 2013Q1

REPORT INFORMATION
  Report Type: Report from Study
  Country: US (occurrence: US)
  Receive Date: 20130204
  Receipt Date: 20130204
  Transmission Date: 20140127
  Serious: Yes (Hospitalization)
  Sender: FDA-Public Use
  Company Number: US-PFIZER INC-US-WYE-H09194909

PATIENT
  Age: 54 Year
  Sex: Female
  Weight: 67.1 kg

DRUGS (19)
  1. TRU-015 [Suspect]
     Indication: RHEUMATOID ARTHRITIS
     Dosage: 800 MG, EVERY 12 WEEKS
     Route: 042
     Dates: start: 20090312, end: 20090312
  2. TRU-015 [Suspect]
     Dosage: 800 MG, EVERY 12 WEEKS
     Route: 042
     Dates: start: 20090827, end: 20090827
  3. PLACEBO [Suspect]
     Indication: RHEUMATOID ARTHRITIS
     Dosage: UNK
     Route: 042
     Dates: start: 20090604, end: 20090604
  4. PLACEBO [Suspect]
     Dosage: UNK
     Route: 042
     Dates: start: 20091119, end: 20091119
  5. SOLU-MEDRONE [Suspect]
     Indication: RHEUMATOID ARTHRITIS
     Dosage: 100 MG, 1X/DAY
     Route: 042
     Dates: start: 20090312, end: 20090312
  6. SOLU-MEDRONE [Suspect]
     Dosage: 100 MG, 1X/DAY
     Route: 042
     Dates: start: 20090604, end: 20090604
  7. SOLU-MEDRONE [Suspect]
     Dosage: 100 MG, 1X/DAY
     Route: 042
     Dates: start: 20090827, end: 20090827
  8. PLACEBO [Suspect]
     Indication: RHEUMATOID ARTHRITIS
     Dosage: UNK
     Route: 042
     Dates: start: 20091119, end: 20091119
  9. PREDNISONE [Suspect]
     Indication: RHEUMATOID ARTHRITIS
     Dosage: 20 MG, 1X/DAY
     Route: 048
     Dates: start: 20090310, end: 20090312
  10. PREDNISONE [Suspect]
     Dosage: 20 MG, 1X/DAY
     Route: 048
     Dates: start: 20090602, end: 20090604
  11. PREDNISONE [Suspect]
     Dosage: 20 MG, 1X/DAY
     Route: 048
     Dates: start: 20090825, end: 20090827
  12. PLACEBO [Suspect]
     Indication: RHEUMATOID ARTHRITIS
     Dosage: UNK
     Route: 048
     Dates: start: 20091117, end: 20091119
  13. METHOTREXATE SODIUM [Suspect]
     Dosage: UNSPECIFIED
     Route: 065
     Dates: start: 1998
  14. ADVIL [Suspect]
     Indication: RHEUMATOID ARTHRITIS
     Dosage: UNSPECIFIED DOSE (MORE THAN 4 TABLETS PER DAY)
     Route: 048
     Dates: start: 20090201, end: 20090425
  15. ADVIL [Suspect]
     Dosage: 4.0 DF, 1X/DAY
     Route: 048
     Dates: start: 20090425
  16. BENADRYL [Concomitant]
     Dosage: UNK
     Route: 065
     Dates: start: 20090312, end: 20090312
  17. OMEGA 3 [Concomitant]
     Dosage: UNK
     Route: 065
     Dates: start: 2008
  18. FOLIC ACID [Concomitant]
     Dosage: UNK
     Route: 065
     Dates: start: 1998
  19. MULTIVITAMINS WITH MINERALS [Concomitant]
     Dosage: UNK
     Route: 065
     Dates: start: 2000

REACTIONS (1)
  - Oesophageal ulcer [Recovered/Resolved]
